FAERS Safety Report 15296683 (Version 1)
Quarter: 2018Q3

REPORT INFORMATION
  Report Type: Spontaneous
  Country: US (occurrence: US)
  Receive Date: 20180820
  Receipt Date: 20180820
  Transmission Date: 20181010
  Serious: Yes (Other)
  Sender: FDA-Public Use
  Company Number: US-BRACCO-2018US04259

PATIENT
  Age: 64 Year
  Sex: Female

DRUGS (2)
  1. READI?CAT 2 [Suspect]
     Active Substance: BARIUM SULFATE
     Indication: COMPUTERISED TOMOGRAM
     Dosage: 1 BOTTLE, SINGLE
     Route: 048
     Dates: start: 201709, end: 201709
  2. READI?CAT 2 [Suspect]
     Active Substance: BARIUM SULFATE
     Indication: COMPUTERISED TOMOGRAM
     Dosage: 1 BOTTLE, SINGLE
     Route: 048
     Dates: start: 201709, end: 201709

REACTIONS (4)
  - Hypertensive crisis [Recovered/Resolved]
  - Palpitations [Recovered/Resolved]
  - Malaise [Recovered/Resolved]
  - Chest discomfort [Recovered/Resolved]

NARRATIVE: CASE EVENT DATE: 201709
